FAERS Safety Report 13890647 (Version 1)
Quarter: 2017Q3

REPORT INFORMATION
  Report Type: Spontaneous
  Country: FR (occurrence: FR)
  Receive Date: 20170822
  Receipt Date: 20170822
  Transmission Date: 20171127
  Serious: Yes (Hospitalization, Other)
  Sender: FDA-Public Use
  Company Number: FR-PFIZER INC-2017360173

PATIENT
  Age: 74 Year
  Sex: Male

DRUGS (11)
  1. PREVENAR [Concomitant]
     Active Substance: PNEUMOCOCCAL 7-VALENT CONJUGATE VACCINE (DIPHTHERIA CRM197 PROTEIN)
     Dosage: 1 DF, UNK
     Route: 065
     Dates: start: 20161213, end: 20161213
  2. OMEPRAZOLE. [Concomitant]
     Active Substance: OMEPRAZOLE
     Indication: GASTROOESOPHAGEAL REFLUX DISEASE
     Dosage: 20 MG, DAILY
     Route: 048
  3. IMETH [Suspect]
     Active Substance: METHOTREXATE SODIUM
     Dosage: 20 MG, WEEKLY (20 MG,1 IN 1 W)
     Route: 048
     Dates: start: 20170211
  4. UVEDOSE [Suspect]
     Active Substance: CHOLECALCIFEROL
     Indication: VITAMIN SUPPLEMENTATION
     Dosage: 100 000 IU, EVERY 2 MONTHS
     Route: 048
     Dates: start: 20161213
  5. CORTANCYL [Concomitant]
     Active Substance: PREDNISONE
     Dosage: 2 MG, DAILY
     Route: 048
     Dates: start: 20170513, end: 20170607
  6. CHIBRO-PROSCAR [Concomitant]
     Active Substance: FINASTERIDE
     Indication: POLYP
     Dosage: 5 MG, DAILY
     Route: 048
     Dates: start: 201608
  7. IMETH [Suspect]
     Active Substance: METHOTREXATE SODIUM
     Indication: RHEUMATOID ARTHRITIS
     Dosage: 15 MG, WEEKLY (15 MG,1 IN 1 W)
     Route: 048
     Dates: start: 20170110, end: 20170210
  8. SPECIAFOLDINE [Suspect]
     Active Substance: FOLIC ACID
     Dosage: 10 MG, WEEKLY (10 MG,1 W)
     Route: 048
     Dates: start: 20170110
  9. KARDEGIC [Concomitant]
     Active Substance: ASPIRIN LYSINE
     Indication: ARTERIAL DISORDER
     Dosage: 75 MG, DAILY
     Route: 048
     Dates: start: 201309
  10. CORTANCYL [Concomitant]
     Active Substance: PREDNISONE
     Indication: RHEUMATOID ARTHRITIS
     Dosage: TAPERING DOSES FROM DEC-2016 (2 MG,1 D)
     Route: 048
     Dates: start: 201612
  11. PNEUMO 23 [Concomitant]
     Active Substance: PNEUMOCOCCAL VACCINE, POLYVALENT 23
     Dosage: 1 DF, UNK
     Route: 065
     Dates: start: 20170210, end: 20170210

REACTIONS (2)
  - Sudden hearing loss [Not Recovered/Not Resolved]
  - Vertigo [Not Recovered/Not Resolved]

NARRATIVE: CASE EVENT DATE: 20170607
